FAERS Safety Report 4859951-6 (Version None)
Quarter: 2005Q4

REPORT INFORMATION
  Report Type: 
  Country: None (occurrence: None)
  Receive Date: 20051219
  Receipt Date: 20051209
  Transmission Date: 20060501
  Serious: Yes (Other)
  Sender: FDA-Public Use
  Company Number: CA-BRISTOL-MYERS SQUIBB COMPANY-13217815

PATIENT
  Age: 44 Year
  Sex: Male

DRUGS (8)
  1. TEQUIN [Suspect]
     Route: 048
  2. ACETAMINOPHEN [Concomitant]
  3. ALPRAZOLAM [Concomitant]
     Route: 048
  4. AMANTADINE HCL [Concomitant]
     Route: 048
  5. IPRATROPIUM BROMIDE [Concomitant]
  6. PREDNISONE TAB [Concomitant]
  7. SALBUTAMOL [Concomitant]
  8. SERTRALINE HCL [Concomitant]
     Route: 048

REACTIONS (1)
  - HYPERGLYCAEMIA [None]
